FAERS Safety Report 13462403 (Version 1)
Quarter: 2017Q2

REPORT INFORMATION
  Report Type: Spontaneous
  Country: JP (occurrence: JP)
  Receive Date: 20170420
  Receipt Date: 20170420
  Transmission Date: 20170830
  Serious: Yes (Other)
  Sender: FDA-Public Use
  Company Number: JP-FERRINGPH-2017FE01698

PATIENT

DRUGS (3)
  1. HYDROCORTISONE. [Suspect]
     Active Substance: HYDROCORTISONE
     Indication: HORMONE REPLACEMENT THERAPY
     Route: 065
  2. HYPOTHALAMIC HORMONES [Suspect]
     Active Substance: UNSPECIFIED INGREDIENT
     Indication: PRODUCT USED FOR UNKNOWN INDICATION
     Route: 042
  3. DESMOPRESSIN [Suspect]
     Active Substance: DESMOPRESSIN
     Indication: DIABETES INSIPIDUS
     Dosage: UNK
     Route: 065
     Dates: start: 2016

REACTIONS (4)
  - Decreased appetite [Unknown]
  - Hypophysitis [None]
  - Hyponatraemia [Unknown]
  - Malaise [Unknown]

NARRATIVE: CASE EVENT DATE: 201606
